FAERS Safety Report 10488583 (Version 1)
Quarter: 2014Q4

REPORT INFORMATION
  Report Type: Spontaneous
  Country: US (occurrence: None)
  Receive Date: 20141001
  Receipt Date: 20141001
  Transmission Date: 20150528
  Serious: Yes (Hospitalization)
  Sender: FDA-Public Use
  Company Number: None

PATIENT
  Age: 61 Year
  Sex: Male
  Weight: 70.9 kg

DRUGS (1)
  1. EPTIFIBATIDE [Suspect]
     Active Substance: EPTIFIBATIDE
     Indication: ACUTE CORONARY SYNDROME
     Dosage: ~08/19/2014 THRU 08/19/2014
     Dates: start: 20140819, end: 20140819

REACTIONS (2)
  - Drug hypersensitivity [None]
  - Thrombocytopenia [None]

NARRATIVE: CASE EVENT DATE: 20140819
